FAERS Safety Report 19241752 (Version 1)
Quarter: 2021Q2

REPORT INFORMATION
  Report Type: Spontaneous
  Country: FR (occurrence: FR)
  Receive Date: 20210511
  Receipt Date: 20210511
  Transmission Date: 20210717
  Serious: Yes (Other)
  Sender: FDA-Public Use
  Company Number: FR-ALLERGAN-2117576US

PATIENT
  Sex: Female

DRUGS (1)
  1. ESCITALOPRAM OXALATE ? BP [Suspect]
     Active Substance: ESCITALOPRAM OXALATE
     Indication: ADULT FAILURE TO THRIVE
     Dosage: 1 DF, QD
     Route: 048
     Dates: start: 20210415, end: 20210416

REACTIONS (2)
  - Product use in unapproved indication [Unknown]
  - Angioedema [Recovered/Resolved]

NARRATIVE: CASE EVENT DATE: 20210416
